FAERS Safety Report 4625709-6 (Version None)
Quarter: 2005Q1

REPORT INFORMATION
  Report Type: 
  Country: None (occurrence: None)
  Receive Date: 20050330
  Receipt Date: 20050318
  Transmission Date: 20050727
  Serious: Yes (Life-Threatening, Disabling, Other)
  Sender: FDA-Public Use
  Company Number: 2005046745

PATIENT
  Age: 77 Year
  Sex: Female

DRUGS (5)
  1. CELEBREX [Suspect]
     Indication: TENDONITIS
     Dosage: 400 MG (200 MG, 2 IN 1 D), ORAL
     Route: 048
     Dates: start: 20041206, end: 20041211
  2. CODEINE PHOSPHATE AND ACETAMINOPHEN [Concomitant]
  3. ALBYL-ENTEROSOLUBILE (ACETYLSALICYLIC ACID, MEGNESIUM OXIDE) [Concomitant]
  4. METOPROLOL SUCCINATE [Concomitant]
  5. FUROSEMIDE [Concomitant]

REACTIONS (15)
  - BLOOD PRESSURE FLUCTUATION [None]
  - BLOOD PRESSURE SYSTOLIC INCREASED [None]
  - C-REACTIVE PROTEIN INCREASED [None]
  - CEREBRAL HAEMORRHAGE [None]
  - CONFUSIONAL STATE [None]
  - DYSARTHRIA [None]
  - EXTENSOR PLANTAR RESPONSE [None]
  - FATIGUE [None]
  - MEMORY IMPAIRMENT [None]
  - MENTAL IMPAIRMENT [None]
  - MOBILITY DECREASED [None]
  - MONOPARESIS [None]
  - MONOPLEGIA [None]
  - PARESIS [None]
  - SOMNOLENCE [None]
